FAERS Safety Report 21932017 (Version 2)
Quarter: 2023Q1

REPORT INFORMATION
  Report Type: Spontaneous
  Country: IN (occurrence: IN)
  Receive Date: 20230131
  Receipt Date: 20230302
  Transmission Date: 20230418
  Serious: Yes (Other)
  Sender: FDA-Public Use
  Company Number: IN-PFIZER INC-PV202200006147

PATIENT
  Age: 60 Year
  Sex: Female
  Weight: 54 kg

DRUGS (3)
  1. PALBOCICLIB [Suspect]
     Active Substance: PALBOCICLIB
     Indication: Breast cancer metastatic
     Dosage: 125 MG, 1X/DAY
     Route: 048
     Dates: start: 20220419
  2. LETROZOLE [Concomitant]
     Active Substance: LETROZOLE
     Dosage: 2.5 MG, 1X/DAY
  3. ZOLEDRONIC ACID [Concomitant]
     Active Substance: ZOLEDRONIC ACID
     Dosage: 4 MG

REACTIONS (7)
  - Hypokalaemia [Unknown]
  - Diarrhoea [Unknown]
  - Vomiting [Unknown]
  - Oedema peripheral [Unknown]
  - Pyrexia [Unknown]
  - Asthenia [Unknown]
  - Pollakiuria [Unknown]
